FAERS Safety Report 5307862-4 (Version None)
Quarter: 2007Q2

REPORT INFORMATION
  Report Type: 
  Country: None (occurrence: None)
  Receive Date: 20070420
  Receipt Date: 20070406
  Transmission Date: 20071010
  Serious: Yes (Hospitalization)
  Sender: FDA-Public Use
  Company Number: 2007000131

PATIENT
  Age: 64 Year
  Sex: Male
  Weight: 73.5 kg

DRUGS (7)
  1. ERLOTINIB (TABLET) [Suspect]
     Indication: COLON CANCER METASTATIC
     Dosage: 150 MG QD, ORAL
     Route: 048
     Dates: start: 20061009
  2. TOPOTECAN (TOPOTECAN) (INJECTION FOR INFUSION) [Suspect]
     Indication: COLON CANCER METASTATIC
     Dosage: SEE IMAGE
     Route: 042
     Dates: start: 20061009
  3. TOPOTECAN (TOPOTECAN) (INJECTION FOR INFUSION) [Suspect]
     Indication: COLON CANCER METASTATIC
     Dosage: SEE IMAGE
     Route: 042
     Dates: start: 20061110
  4. PHENERGAN (PROMETHAZINE HYDROCHLORIDE) [Concomitant]
  5. PERCOCET [Concomitant]
  6. PAXIL [Concomitant]
  7. ARANESP [Concomitant]

REACTIONS (4)
  - ANAEMIA [None]
  - BLOOD POTASSIUM DECREASED [None]
  - NAUSEA [None]
  - VOMITING [None]
